FAERS Safety Report 7390468-3 (Version None)
Quarter: 2011Q2

REPORT INFORMATION
  Report Type: 
  Country: None (occurrence: None)
  Receive Date: 20110401
  Receipt Date: 20110323
  Transmission Date: 20111010
  Serious: Yes (Death, Hospitalization)
  Sender: FDA-Public Use
  Company Number: CH-GENENTECH-315891

PATIENT
  Age: 54 Year
  Sex: Female

DRUGS (2)
  1. MABTHERA [Suspect]
     Indication: NON-HODGKIN'S LYMPHOMA
     Dosage: UNK
     Route: 042
     Dates: start: 20040101
  2. MABTHERA [Suspect]
     Dosage: UNK UNK, Q3M
     Route: 042
     Dates: start: 20040101

REACTIONS (4)
  - VISUAL IMPAIRMENT [None]
  - PROGRESSIVE MULTIFOCAL LEUKOENCEPHALOPATHY [None]
  - ENCEPHALOPATHY [None]
  - APRAXIA [None]
